FAERS Safety Report 15926352 (Version 4)
Quarter: 2019Q3

REPORT INFORMATION
  Report Type: Spontaneous
  Country: US (occurrence: US)
  Receive Date: 20190206
  Receipt Date: 20190802
  Transmission Date: 20191004
  Serious: Yes (Death, Other)
  Sender: FDA-Public Use
  Company Number: US-ASTRAZENECA-2018SF21172

PATIENT
  Sex: Male

DRUGS (45)
  1. ATROPINE. [Concomitant]
     Active Substance: ATROPINE
  2. ASPIRIN. [Concomitant]
     Active Substance: ASPIRIN
  3. NALOXONE [Concomitant]
     Active Substance: NALOXONE
  4. CLOPIDOGREL [Concomitant]
     Active Substance: CLOPIDOGREL BISULFATE
  5. NEXIUM [Suspect]
     Active Substance: ESOMEPRAZOLE MAGNESIUM
     Indication: GASTROOESOPHAGEAL REFLUX DISEASE
     Route: 048
     Dates: start: 20030101, end: 20111201
  6. PRILOSEC OTC [Suspect]
     Active Substance: OMEPRAZOLE MAGNESIUM
     Indication: GASTROOESOPHAGEAL REFLUX DISEASE
     Route: 048
     Dates: start: 20121129
  7. PRILOSEC OTC [Suspect]
     Active Substance: OMEPRAZOLE MAGNESIUM
     Indication: GASTROOESOPHAGEAL REFLUX DISEASE
     Route: 048
     Dates: start: 20030601, end: 20111201
  8. HEPARIN [Concomitant]
     Active Substance: HEPARIN SODIUM
  9. LANTUS [Concomitant]
     Active Substance: INSULIN GLARGINE
  10. MULTIVITAMIN [Concomitant]
     Active Substance: VITAMINS
  11. PREDNISOLONE ACETATE. [Concomitant]
     Active Substance: PREDNISOLONE ACETATE
  12. ZOSYN [Concomitant]
     Active Substance: PIPERACILLIN SODIUM\TAZOBACTAM SODIUM
  13. VITAMIN B12 [Concomitant]
     Active Substance: CYANOCOBALAMIN
  14. PREDNISOLONE. [Concomitant]
     Active Substance: PREDNISOLONE
  15. DARBEPOETIN ALFA [Concomitant]
     Active Substance: DARBEPOETIN ALFA
  16. GENTAMYCIN [Concomitant]
     Active Substance: GENTAMICIN
  17. ACETAMINOPHEN. [Concomitant]
     Active Substance: ACETAMINOPHEN
  18. FOLIC ACID. [Concomitant]
     Active Substance: FOLIC ACID
  19. PANTOPRAZOLE [Concomitant]
     Active Substance: PANTOPRAZOLE
  20. FAMOTIDINE. [Concomitant]
     Active Substance: FAMOTIDINE
  21. IMDUR [Concomitant]
     Active Substance: ISOSORBIDE MONONITRATE
  22. AMBIEN [Concomitant]
     Active Substance: ZOLPIDEM TARTRATE
  23. FLUMAZENIL. [Concomitant]
     Active Substance: FLUMAZENIL
  24. DILAUDID [Concomitant]
     Active Substance: HYDROMORPHONE HYDROCHLORIDE
  25. NEXIUM 24HR [Suspect]
     Active Substance: ESOMEPRAZOLE MAGNESIUM
     Route: 048
  26. BENADRYL [Concomitant]
     Active Substance: DIPHENHYDRAMINE HYDROCHLORIDE
  27. HYDROMORPHONE [Concomitant]
     Active Substance: HYDROMORPHONE
  28. DOCUSATE SODIUM. [Concomitant]
     Active Substance: DOCUSATE SODIUM
  29. ARANESP [Concomitant]
     Active Substance: DARBEPOETIN ALFA
  30. FAMOTIDINE. [Concomitant]
     Active Substance: FAMOTIDINE
  31. PERCOCET [Concomitant]
     Active Substance: ACETAMINOPHEN\OXYCODONE HYDROCHLORIDE
  32. FAMOTIDINE. [Concomitant]
     Active Substance: FAMOTIDINE
  33. ONDANSETRON [Concomitant]
     Active Substance: ONDANSETRON
  34. VANCOMYCIN [Concomitant]
     Active Substance: VANCOMYCIN
  35. NOREPINEPHRINE. [Concomitant]
     Active Substance: NOREPINEPHRINE
  36. GABAPENTIN. [Concomitant]
     Active Substance: GABAPENTIN
  37. SIMVASTATIN. [Concomitant]
     Active Substance: SIMVASTATIN
  38. ALBUMIN [Concomitant]
     Active Substance: ALBUMIN HUMAN
  39. COREG [Concomitant]
     Active Substance: CARVEDILOL
  40. FLUTICASONE. [Concomitant]
     Active Substance: FLUTICASONE
  41. MIDODRINE [Concomitant]
     Active Substance: MIDODRINE
  42. STREPTOMYCIN [Concomitant]
     Active Substance: STREPTOMYCIN SULFATE
  43. RENAGEL [Concomitant]
     Active Substance: SEVELAMER HYDROCHLORIDE
  44. XALATAN [Concomitant]
     Active Substance: LATANOPROST
  45. MORPHINE [Concomitant]
     Active Substance: MORPHINE

REACTIONS (9)
  - End stage renal disease [Fatal]
  - Nephrogenic anaemia [Unknown]
  - Renal injury [Unknown]
  - Fluid overload [Fatal]
  - Chronic kidney disease-mineral and bone disorder [Unknown]
  - Acute respiratory failure [Fatal]
  - Renal failure [Unknown]
  - Acute kidney injury [Unknown]
  - Chronic kidney disease [Unknown]
